FAERS Safety Report 7412822-3 (Version None)
Quarter: 2011Q2

REPORT INFORMATION
  Report Type: 
  Country: None (occurrence: None)
  Receive Date: 20110413
  Receipt Date: 20110331
  Transmission Date: 20111010
  Serious: Yes (Hospitalization)
  Sender: FDA-Public Use
  Company Number: B0711187A

PATIENT
  Age: 45 Year
  Sex: Female

DRUGS (1)
  1. IMIJECT [Suspect]
     Route: 065

REACTIONS (1)
  - DEVICE LEAKAGE [None]
